FAERS Safety Report 9720216 (Version 1)
Quarter: 2013Q4

REPORT INFORMATION
  Report Type: Spontaneous
  Country: US (occurrence: US)
  Receive Date: 20131129
  Receipt Date: 20131129
  Transmission Date: 20140711
  Serious: No
  Sender: FDA-Public Use
  Company Number: US-009507513-1311USA012062

PATIENT
  Age: 81 Year
  Sex: Male

DRUGS (4)
  1. AZASITE [Suspect]
     Indication: DRY EYE
     Dosage: UNK; INTRAOCULAR
     Route: 047
     Dates: start: 20131125
  2. DIOVAN [Concomitant]
     Dosage: 160 MG, QD
  3. DIGOXIN [Concomitant]
  4. ATENOLOL [Concomitant]

REACTIONS (2)
  - Blood pressure increased [Not Recovered/Not Resolved]
  - Off label use [Unknown]
